FAERS Safety Report 21081514 (Version 3)
Quarter: 2022Q3

REPORT INFORMATION
  Report Type: Report from Study
  Country: TH (occurrence: None)
  Receive Date: 20220714
  Receipt Date: 20220826
  Transmission Date: 20221026
  Serious: Yes (Other)
  Sender: FDA-Public Use
  Company Number: TH-Merck Healthcare KGaA-9335636

PATIENT
  Age: 4 Year
  Sex: Female

DRUGS (2)
  1. SAIZEN [Suspect]
     Active Substance: SOMATROPIN
     Indication: Growth hormone deficiency
     Route: 058
     Dates: start: 20210409, end: 20220707
  2. SAIZEN [Suspect]
     Active Substance: SOMATROPIN
     Indication: Small for dates baby

REACTIONS (2)
  - Ophthalmoplegia [Unknown]
  - Therapy interrupted [Unknown]

NARRATIVE: CASE EVENT DATE: 20220707
